FAERS Safety Report 6790017-4 (Version None)
Quarter: 2010Q2

REPORT INFORMATION
  Report Type: 
  Country: None (occurrence: None)
  Receive Date: 20100520
  Receipt Date: 20090625
  Transmission Date: 20101027
  Serious: Yes (Other)
  Sender: FDA-Public Use
  Company Number: 2008065421

PATIENT
  Age: 59 Year
  Sex: Female
  Weight: 68 kg

DRUGS (8)
  1. PROVERA [Suspect]
     Indication: HORMONE REPLACEMENT THERAPY
     Dosage: 10 MG, ORAL
     Route: 048
     Dates: start: 19941201, end: 19980201
  2. PREMARIN [Suspect]
     Indication: HORMONE REPLACEMENT THERAPY
     Dosage: 0.625 MG
     Dates: start: 19941201, end: 19980201
  3. PREMPRO [Suspect]
     Indication: HORMONE REPLACEMENT THERAPY
     Dosage: 0.625/2.5MG
     Dates: start: 19980201, end: 19981201
  4. SYNTHROID [Concomitant]
  5. PRILOSEC (OMEPRAZOLE) [Concomitant]
  6. CLARITIN [Concomitant]
  7. TRANXENE [Concomitant]
  8. ZIAC [Concomitant]

REACTIONS (1)
  - BREAST CANCER FEMALE [None]
